FAERS Safety Report 7223284-3 (Version None)
Quarter: 2011Q1

REPORT INFORMATION
  Report Type: 
  Country: None (occurrence: None)
  Receive Date: 20110112
  Receipt Date: 20100408
  Transmission Date: 20110831
  Serious: No
  Sender: FDA-Public Use
  Company Number: US-ALLERGAN-1004597US

PATIENT
  Sex: Female

DRUGS (5)
  1. MULTI-VITAMINS [Concomitant]
  2. PAXIL [Concomitant]
  3. PREVACID [Concomitant]
  4. ZESTRIL [Concomitant]
  5. RESTASIS [Suspect]
     Indication: DRY EYE
     Dosage: UNK

REACTIONS (1)
  - ERYTHEMA OF EYELID [None]
